FAERS Safety Report 8950367 (Version 1)
Quarter: 2012Q4

REPORT INFORMATION
  Report Type: 
  Country: US (occurrence: US)
  Receive Date: 20121207
  Receipt Date: 20121207
  Transmission Date: 20130627
  Serious: No
  Sender: FDA-Public Use
  Company Number: US-PFIZER INC-2012307527

PATIENT
  Age: 56 Year
  Sex: Female
  Weight: 41.72 kg

DRUGS (3)
  1. LYRICA [Suspect]
     Indication: SEIZURES
     Dosage: 75mg one capsule in morning, two capsules at night
     Route: 048
     Dates: start: 20121004, end: 20121007
  2. NEURONTIN [Concomitant]
     Indication: PAIN
     Dosage: UNK
  3. NEURONTIN [Concomitant]
     Indication: SEIZURES

REACTIONS (2)
  - Confusional state [Recovered/Resolved]
  - Feeling abnormal [Recovered/Resolved]
